FAERS Safety Report 9689827 (Version 3)
Quarter: 2013Q4

REPORT INFORMATION
  Report Type: Spontaneous
  Country: US (occurrence: US)
  Receive Date: 20131115
  Receipt Date: 20131204
  Transmission Date: 20140711
  Serious: Yes (Hospitalization, Other)
  Sender: FDA-Public Use
  Company Number: US-PFIZER INC-2013061967

PATIENT
  Age: 47 Year
  Sex: Female
  Weight: 81.63 kg

DRUGS (11)
  1. LYRICA [Suspect]
     Indication: FIBROMYALGIA
     Dosage: 75 MG, 2X/DAY
     Route: 048
  2. LYRICA [Suspect]
     Dosage: 100 MG, 2X/DAY
     Route: 048
  3. NEXIUM [Concomitant]
     Dosage: UNK
  4. MS-CONTIN [Concomitant]
     Dosage: UNK
  5. ADVAIR [Concomitant]
     Dosage: UNK
  6. AMITIZA [Concomitant]
     Dosage: UNK
  7. ATIVAN [Concomitant]
     Dosage: UNK
  8. BUMEX [Concomitant]
     Dosage: UNK
  9. LISINOPRIL [Concomitant]
     Dosage: UNK
  10. NEFAZODONE [Concomitant]
     Dosage: UNK
  11. SINGULAIR [Concomitant]
     Dosage: UNK

REACTIONS (2)
  - Pneumonia [Not Recovered/Not Resolved]
  - Malaise [Not Recovered/Not Resolved]
